FAERS Safety Report 23046597 (Version 1)
Quarter: 2023Q4

REPORT INFORMATION
  Report Type: Spontaneous
  Country: JP (occurrence: None)
  Receive Date: 20231009
  Receipt Date: 20231009
  Transmission Date: 20240109
  Serious: Yes (Life-Threatening, Other)
  Sender: FDA-Public Use
  Company Number: 2023A227739

PATIENT
  Age: 65 Year
  Sex: Male

DRUGS (2)
  1. IMFINZI [Suspect]
     Active Substance: DURVALUMAB
     Indication: Hepatocellular carcinoma
     Route: 041
  2. IMJUDO [Suspect]
     Active Substance: TREMELIMUMAB\TREMELIMUMAB-ACTL
     Indication: Hepatocellular carcinoma
     Route: 041

REACTIONS (5)
  - Shock [Unknown]
  - Interstitial lung disease [Recovering/Resolving]
  - Fall [Unknown]
  - Hypoxia [Unknown]
  - Supraventricular tachycardia [Unknown]
